FAERS Safety Report 6146293-4 (Version None)
Quarter: 2009Q2

REPORT INFORMATION
  Report Type: 
  Country: None (occurrence: None)
  Receive Date: 20090403
  Receipt Date: 20090331
  Transmission Date: 20091009
  Serious: Yes (Death, Hospitalization)
  Sender: FDA-Public Use
  Company Number: US025489

PATIENT
  Sex: Male

DRUGS (2)
  1. TREANDA [Suspect]
     Indication: CHRONIC LYMPHOCYTIC LEUKAEMIA
     Dosage: INTRAVENOUS
     Route: 042
     Dates: start: 20081001
  2. ALLOPURINOL [Suspect]

REACTIONS (7)
  - FREQUENT BOWEL MOVEMENTS [None]
  - LYMPHADENOPATHY [None]
  - REFUSAL OF TREATMENT BY PATIENT [None]
  - SEPSIS [None]
  - STEVENS-JOHNSON SYNDROME [None]
  - STOMATITIS [None]
  - TOXIC EPIDERMAL NECROLYSIS [None]
